FAERS Safety Report 5245024-X (Version None)
Quarter: 2007Q1

REPORT INFORMATION
  Report Type: 
  Country: None (occurrence: None)
  Receive Date: 20070221
  Receipt Date: 20070221
  Transmission Date: 20070707
  Serious: Yes (Hospitalization, Other)
  Sender: FDA-Public Use
  Company Number: None

PATIENT
  Age: 57 Year
  Sex: Female
  Weight: 69.8539 kg

DRUGS (2)
  1. ALBUTEROL SULFATE [Suspect]
     Indication: ASTHMA
     Dosage: 1 VIAL, 0.83%  AS NEEDED ORAL INHAL  2 VIALS FROM NEB TREATMENTS
     Route: 055
  2. PHENYTOIN [Suspect]
     Indication: CONVULSION
     Dosage: 100 MG, 3 CAPS EVERY NIGHT ORAL  AFTER SEIZURE 2/15/2006
     Route: 048
     Dates: start: 20060215

REACTIONS (9)
  - ABDOMINAL DISTENSION [None]
  - CONCUSSION [None]
  - CONVULSION [None]
  - DISORIENTATION [None]
  - EYE DISORDER [None]
  - FALL [None]
  - HEADACHE [None]
  - MALAISE [None]
  - NAUSEA [None]
